FAERS Safety Report 7329840-6 (Version None)
Quarter: 2011Q1

REPORT INFORMATION
  Report Type: 
  Country: None (occurrence: None)
  Receive Date: 20110303
  Receipt Date: 20110218
  Transmission Date: 20110831
  Serious: Yes (Hospitalization)
  Sender: FDA-Public Use
  Company Number: DE-MYLANLABS-2011S1003331

PATIENT
  Age: 84 Year
  Sex: Female
  Weight: 80 kg

DRUGS (9)
  1. CITALOPRAM [Interacting]
     Indication: PRODUCT USED FOR UNKNOWN INDICATION
     Route: 048
     Dates: start: 20080101
  2. BISO [Concomitant]
     Indication: HYPERTENSION
     Route: 048
  3. BERLOSIN [Concomitant]
     Indication: PAIN
     Route: 048
     Dates: start: 20091204, end: 20091204
  4. BLOPRESID [Concomitant]
     Indication: HYPERTENSION
     Dosage: 1 DF= 16MG CANDESARTAN + 12.5MG HYDROCHLOROTHIAZID
     Route: 048
  5. XARELTO [Suspect]
     Indication: THROMBOSIS PROPHYLAXIS
     Route: 048
     Dates: start: 20091203, end: 20100119
  6. CARMEN [Concomitant]
     Indication: HYPERTENSION
     Route: 048
  7. BLOPRESS [Concomitant]
     Indication: HYPERTENSION
     Route: 048
  8. OXYGESIC [Concomitant]
     Indication: PAIN
     Route: 048
     Dates: start: 20091204, end: 20091204
  9. AERIUS [Concomitant]
     Indication: PRODUCT USED FOR UNKNOWN INDICATION
     Dosage: DARREICHUNGSFORM IST UNBEKANNT
     Route: 048

REACTIONS (3)
  - IMPAIRED HEALING [None]
  - DRUG INTERACTION [None]
  - POST PROCEDURAL HAEMATOMA [None]
